FAERS Safety Report 10383027 (Version 1)
Quarter: 2014Q3

REPORT INFORMATION
  Report Type: Spontaneous
  Country: US (occurrence: US)
  Receive Date: 20140813
  Receipt Date: 20140813
  Transmission Date: 20150326
  Serious: Yes (Hospitalization)
  Sender: FDA-Public Use
  Company Number: US-SA-2014SA090613

PATIENT
  Age: 44 Year
  Sex: Male
  Weight: 58.05 kg

DRUGS (19)
  1. METOLAZONE. [Concomitant]
     Active Substance: METOLAZONE
  2. CARDIZEM CD [Concomitant]
     Active Substance: DILTIAZEM HYDROCHLORIDE
  3. TEMAZEPAM. [Concomitant]
     Active Substance: TEMAZEPAM
  4. NORMAL SALINE [Concomitant]
     Active Substance: SODIUM CHLORIDE
  5. TEGRETOL [Concomitant]
     Active Substance: CARBAMAZEPINE
  6. FABRAZYME [Suspect]
     Active Substance: AGALSIDASE BETA
     Indication: FABRY^S DISEASE
     Route: 042
     Dates: start: 20110221
  7. ZANTAC [Concomitant]
     Active Substance: RANITIDINE HYDROCHLORIDE
  8. VITAMIN D [Concomitant]
     Active Substance: CHOLECALCIFEROL
  9. WATER. [Concomitant]
     Active Substance: WATER
  10. OMEPRAZOLE. [Concomitant]
     Active Substance: OMEPRAZOLE
  11. LISINOPRIL. [Concomitant]
     Active Substance: LISINOPRIL
  12. SODIUM CHLORIDE. [Concomitant]
     Active Substance: SODIUM CHLORIDE
  13. LIDOCAINE. [Concomitant]
     Active Substance: LIDOCAINE
  14. METOPROLOL SUCCINATE. [Concomitant]
     Active Substance: METOPROLOL SUCCINATE
  15. EPIPEN [Concomitant]
     Active Substance: EPINEPHRINE
  16. NIFEDIPINE. [Concomitant]
     Active Substance: NIFEDIPINE
  17. BUMETANIDE. [Concomitant]
     Active Substance: BUMETANIDE
  18. LIPITOR [Concomitant]
     Active Substance: ATORVASTATIN CALCIUM
  19. CLARITIN [Concomitant]
     Active Substance: LORATADINE

REACTIONS (1)
  - Hypertension [Recovered/Resolved]

NARRATIVE: CASE EVENT DATE: 20140627
